FAERS Safety Report 9929295 (Version 1)
Quarter: 2014Q1

REPORT INFORMATION
  Report Type: Spontaneous
  Country: PL (occurrence: PL)
  Receive Date: 20140227
  Receipt Date: 20140227
  Transmission Date: 20141002
  Serious: Yes (Hospitalization)
  Sender: FDA-Public Use
  Company Number: PL-ROXANE LABORATORIES, INC.-2014-RO-00256RO

PATIENT
  Age: 61 Year
  Sex: Female

DRUGS (3)
  1. RISPERIDONE [Suspect]
     Indication: PSYCHOTIC DISORDER
     Dosage: 1 MG
     Route: 065
  2. ZOLPIDEM [Suspect]
     Indication: INSOMNIA
     Dosage: 10 MG
     Route: 065
  3. SIBUTRAMINE [Suspect]
     Indication: OBESITY
     Dosage: 15 MG
     Route: 065

REACTIONS (2)
  - Abnormal behaviour [Recovered/Resolved]
  - Amnesia [Recovered/Resolved]
